FAERS Safety Report 5318266-2 (Version None)
Quarter: 2007Q2

REPORT INFORMATION
  Report Type: 
  Country: None (occurrence: None)
  Receive Date: 20070507
  Receipt Date: 20070425
  Transmission Date: 20071010
  Serious: Yes (Hospitalization)
  Sender: FDA-Public Use
  Company Number: PHEH2007US04142

PATIENT
  Age: 78 Year
  Sex: Female
  Weight: 63.492 kg

DRUGS (7)
  1. ZELNORM [Suspect]
     Indication: IRRITABLE BOWEL SYNDROME
     Dosage: 6 MG, BID
     Route: 065
     Dates: start: 20050101, end: 20070402
  2. PRAVACHOL [Concomitant]
     Indication: BLOOD CHOLESTEROL
  3. REGLAN [Concomitant]
     Indication: CHEST PAIN
     Dosage: 10 MG, QID
     Dates: start: 20070329
  4. CARAFATE [Concomitant]
     Indication: CHEST PAIN
     Dates: start: 20070329
  5. COUMADIN [Concomitant]
     Dates: start: 20070413
  6. PLAVIX [Concomitant]
     Dates: start: 20060101, end: 20070413
  7. PLAVIX [Concomitant]
     Dates: start: 20060101, end: 20070413

REACTIONS (10)
  - ABDOMINAL PAIN UPPER [None]
  - ANGIOPLASTY [None]
  - BACK PAIN [None]
  - BREAST PAIN [None]
  - CHEST PAIN [None]
  - CORONARY ARTERY OCCLUSION [None]
  - DIZZINESS [None]
  - DYSPNOEA [None]
  - MUSCULAR WEAKNESS [None]
  - TRANSIENT ISCHAEMIC ATTACK [None]
